FAERS Safety Report 6421620-9 (Version None)
Quarter: 2009Q4

REPORT INFORMATION
  Report Type: 
  Country: None (occurrence: None)
  Receive Date: 20091029
  Receipt Date: 20091029
  Transmission Date: 20100525
  Serious: No
  Sender: FDA-Public Use
  Company Number: None

PATIENT
  Age: 34 Year
  Sex: Female
  Weight: 63.5036 kg

DRUGS (4)
  1. SINGULAIR [Suspect]
     Indication: ASTHMA
     Dosage: 10 MG 1QD 047
     Dates: start: 20090601
  2. EFFEXOR [Concomitant]
  3. PREVACID [Concomitant]
  4. YAZ [Concomitant]

REACTIONS (3)
  - ANGER [None]
  - ANXIETY [None]
  - HOSTILITY [None]
